FAERS Safety Report 20919792 (Version 2)
Quarter: 2022Q3

REPORT INFORMATION
  Report Type: Spontaneous
  Country: US (occurrence: US)
  Receive Date: 20220606
  Receipt Date: 20220706
  Transmission Date: 20221026
  Serious: No
  Sender: FDA-Public Use
  Company Number: US-PFIZER INC-202200798614

PATIENT
  Age: 58 Year
  Sex: Female

DRUGS (1)
  1. EUCRISA [Suspect]
     Active Substance: CRISABOROLE
     Dosage: UNK, 2X/DAY (TO AFFECTED AREAS ON FACE TWICE DAILY AS NEEDED)
     Route: 061

REACTIONS (2)
  - Swelling face [Unknown]
  - Disease recurrence [Unknown]
